FAERS Safety Report 10868045 (Version 1)
Quarter: 2015Q1

REPORT INFORMATION
  Report Type: Report from Study
  Country: NZ (occurrence: NZ)
  Receive Date: 20150225
  Receipt Date: 20150225
  Transmission Date: 20150721
  Serious: Yes (Death)
  Sender: FDA-Public Use
  Company Number: NZ-ASTRAZENECA-2015SE15515

PATIENT
  Age: 28539 Day
  Sex: Male

DRUGS (1)
  1. BRILINTA [Suspect]
     Active Substance: TICAGRELOR
     Route: 048
     Dates: start: 20131212

REACTIONS (1)
  - Death [Fatal]

NARRATIVE: CASE EVENT DATE: 20150121
